FAERS Safety Report 21664787 (Version 5)
Quarter: 2025Q2

REPORT INFORMATION
  Report Type: Spontaneous
  Country: PL (occurrence: PL)
  Receive Date: 20221130
  Receipt Date: 20250508
  Transmission Date: 20250717
  Serious: Yes (Other)
  Sender: MYLAN
  Company Number: PL-HALEON-PLCH2022EME035082

PATIENT
  Age: 60 Year
  Sex: Male

DRUGS (60)
  1. PANTOPRAZOLE [Suspect]
     Active Substance: PANTOPRAZOLE
     Indication: Cardiac failure chronic
  2. PANTOPRAZOLE [Suspect]
     Active Substance: PANTOPRAZOLE
     Route: 065
  3. PANTOPRAZOLE [Suspect]
     Active Substance: PANTOPRAZOLE
     Route: 065
  4. PANTOPRAZOLE [Suspect]
     Active Substance: PANTOPRAZOLE
  5. ROSUVASTATIN [Suspect]
     Active Substance: ROSUVASTATIN
     Indication: Cardiac failure chronic
     Dosage: 40 MILLIGRAM, QD, 40 MG, QD
  6. ROSUVASTATIN [Suspect]
     Active Substance: ROSUVASTATIN
     Dosage: 40 MILLIGRAM, QD, 40 MG, QD
     Route: 065
  7. ROSUVASTATIN [Suspect]
     Active Substance: ROSUVASTATIN
     Dosage: 40 MILLIGRAM, QD, 40 MG, QD
     Route: 065
  8. ROSUVASTATIN [Suspect]
     Active Substance: ROSUVASTATIN
     Dosage: 40 MILLIGRAM, QD, 40 MG, QD
  9. CLOPIDOGREL [Suspect]
     Active Substance: CLOPIDOGREL BISULFATE
     Indication: Cardiac failure chronic
     Route: 065
  10. CLOPIDOGREL [Suspect]
     Active Substance: CLOPIDOGREL BISULFATE
  11. CLOPIDOGREL [Suspect]
     Active Substance: CLOPIDOGREL BISULFATE
  12. CLOPIDOGREL [Suspect]
     Active Substance: CLOPIDOGREL BISULFATE
     Route: 065
  13. CLOPIDOGREL [Suspect]
     Active Substance: CLOPIDOGREL BISULFATE
     Dosage: 75 MILLIGRAM, QD
     Route: 065
  14. CLOPIDOGREL [Suspect]
     Active Substance: CLOPIDOGREL BISULFATE
     Dosage: 75 MILLIGRAM, QD
  15. CLOPIDOGREL [Suspect]
     Active Substance: CLOPIDOGREL BISULFATE
     Dosage: 75 MILLIGRAM, QD
  16. CLOPIDOGREL [Suspect]
     Active Substance: CLOPIDOGREL BISULFATE
     Dosage: 75 MILLIGRAM, QD
     Route: 065
  17. ASPIRIN [Suspect]
     Active Substance: ASPIRIN
     Indication: Cardiac failure chronic
     Dosage: 75 MG, QD
  18. ASPIRIN [Suspect]
     Active Substance: ASPIRIN
     Dosage: 75 MG, QD
     Route: 065
  19. ASPIRIN [Suspect]
     Active Substance: ASPIRIN
     Dosage: 75 MG, QD
     Route: 065
  20. ASPIRIN [Suspect]
     Active Substance: ASPIRIN
     Dosage: 75 MG, QD
  21. CLOPIDOGREL BISULFATE [Suspect]
     Active Substance: CLOPIDOGREL BISULFATE
     Indication: Cardiac failure chronic
  22. CLOPIDOGREL BISULFATE [Suspect]
     Active Substance: CLOPIDOGREL BISULFATE
     Route: 065
  23. CLOPIDOGREL BISULFATE [Suspect]
     Active Substance: CLOPIDOGREL BISULFATE
     Route: 065
  24. CLOPIDOGREL BISULFATE [Suspect]
     Active Substance: CLOPIDOGREL BISULFATE
  25. APIXABAN [Suspect]
     Active Substance: APIXABAN
     Indication: Cardiac failure chronic
     Dosage: 5 MG, QD
  26. APIXABAN [Suspect]
     Active Substance: APIXABAN
     Dosage: 5 MG, QD
     Route: 065
  27. APIXABAN [Suspect]
     Active Substance: APIXABAN
     Dosage: 5 MG, QD
     Route: 065
  28. APIXABAN [Suspect]
     Active Substance: APIXABAN
     Dosage: 5 MG, QD
  29. BISOPROLOL [Suspect]
     Active Substance: BISOPROLOL
     Indication: Cardiac failure chronic
     Dosage: 2.5 MG, QD
  30. BISOPROLOL [Suspect]
     Active Substance: BISOPROLOL
     Dosage: 2.5 MG, QD
  31. BISOPROLOL [Suspect]
     Active Substance: BISOPROLOL
     Dosage: 2.5 MG, QD
     Route: 065
  32. BISOPROLOL [Suspect]
     Active Substance: BISOPROLOL
     Dosage: 2.5 MG, QD
     Route: 065
  33. BISOPROLOL [Suspect]
     Active Substance: BISOPROLOL
     Dosage: 3 MG, QD
  34. BISOPROLOL [Suspect]
     Active Substance: BISOPROLOL
     Dosage: 3 MG, QD
  35. BISOPROLOL [Suspect]
     Active Substance: BISOPROLOL
     Dosage: 3 MG, QD
     Route: 065
  36. BISOPROLOL [Suspect]
     Active Substance: BISOPROLOL
     Dosage: 3 MG, QD
     Route: 065
  37. FUROSEMIDE [Suspect]
     Active Substance: FUROSEMIDE
     Indication: Cardiac failure chronic
  38. FUROSEMIDE [Suspect]
     Active Substance: FUROSEMIDE
     Route: 065
  39. FUROSEMIDE [Suspect]
     Active Substance: FUROSEMIDE
     Route: 065
  40. FUROSEMIDE [Suspect]
     Active Substance: FUROSEMIDE
  41. TORSEMIDE [Suspect]
     Active Substance: TORSEMIDE
     Indication: Cardiac failure chronic
  42. TORSEMIDE [Suspect]
     Active Substance: TORSEMIDE
     Route: 065
  43. TORSEMIDE [Suspect]
     Active Substance: TORSEMIDE
     Route: 065
  44. TORSEMIDE [Suspect]
     Active Substance: TORSEMIDE
  45. RAMIPRIL [Suspect]
     Active Substance: RAMIPRIL
     Indication: Cardiac failure chronic
     Dosage: 2.5 MG, QD
  46. RAMIPRIL [Suspect]
     Active Substance: RAMIPRIL
     Dosage: 2.5 MG, QD
  47. RAMIPRIL [Suspect]
     Active Substance: RAMIPRIL
     Dosage: 2.5 MG, QD
     Route: 065
  48. RAMIPRIL [Suspect]
     Active Substance: RAMIPRIL
     Dosage: 2.5 MG, QD
     Route: 065
  49. RAMIPRIL [Suspect]
     Active Substance: RAMIPRIL
     Dosage: 3 MG, QD
  50. RAMIPRIL [Suspect]
     Active Substance: RAMIPRIL
     Dosage: 3 MG, QD
  51. RAMIPRIL [Suspect]
     Active Substance: RAMIPRIL
     Dosage: 3 MG, QD
     Route: 065
  52. RAMIPRIL [Suspect]
     Active Substance: RAMIPRIL
     Dosage: 3 MG, QD
     Route: 065
  53. FUROSEMIDE [Suspect]
     Active Substance: FUROSEMIDE
     Indication: Cardiac failure chronic
  54. FUROSEMIDE [Suspect]
     Active Substance: FUROSEMIDE
     Route: 065
  55. FUROSEMIDE [Suspect]
     Active Substance: FUROSEMIDE
     Route: 065
  56. FUROSEMIDE [Suspect]
     Active Substance: FUROSEMIDE
  57. ENTRESTO [Concomitant]
     Active Substance: SACUBITRIL\VALSARTAN
     Indication: Product used for unknown indication
  58. ENTRESTO [Concomitant]
     Active Substance: SACUBITRIL\VALSARTAN
     Route: 065
  59. ENTRESTO [Concomitant]
     Active Substance: SACUBITRIL\VALSARTAN
     Route: 065
  60. ENTRESTO [Concomitant]
     Active Substance: SACUBITRIL\VALSARTAN

REACTIONS (5)
  - Myocardial infarction [Unknown]
  - Cardiac failure [Unknown]
  - Atrial fibrillation [Unknown]
  - Dyslipidaemia [Unknown]
  - Off label use [Unknown]
